FAERS Safety Report 18309505 (Version 1)
Quarter: 2020Q3

REPORT INFORMATION
  Report Type: Spontaneous
  Country: US (occurrence: US)
  Receive Date: 20200925
  Receipt Date: 20200925
  Transmission Date: 20201103
  Serious: No
  Sender: FDA-Public Use
  Company Number: NVSC2020US261068

PATIENT

DRUGS (1)
  1. VOLTAREN [Suspect]
     Active Substance: DICLOFENAC SODIUM
     Indication: PRODUCT USED FOR UNKNOWN INDICATION
     Dosage: UNK
     Route: 065

REACTIONS (9)
  - Dyspepsia [Unknown]
  - Dyspnoea [Unknown]
  - Dysgeusia [Unknown]
  - Feeling abnormal [Unknown]
  - Diarrhoea [Unknown]
  - Product administered at inappropriate site [Unknown]
  - Illness [Unknown]
  - Chest discomfort [Unknown]
  - Condition aggravated [Unknown]
